FAERS Safety Report 11082627 (Version 3)
Quarter: 2017Q2

REPORT INFORMATION
  Report Type: Spontaneous
  Country: US (occurrence: US)
  Receive Date: 20150501
  Receipt Date: 20170419
  Transmission Date: 20170829
  Serious: Yes (Other)
  Sender: FDA-Public Use
  Company Number: US-LUNDBECK-DKLU1111900

PATIENT
  Age: 5 Year
  Sex: Male
  Weight: 19 kg

DRUGS (3)
  1. SABRIL [Suspect]
     Active Substance: VIGABATRIN
     Indication: EPILEPSY
  2. SABRIL [Suspect]
     Active Substance: VIGABATRIN
     Indication: INFANTILE SPASMS
  3. SABRIL [Suspect]
     Active Substance: VIGABATRIN
     Indication: SEIZURE
     Route: 048
     Dates: start: 20111117

REACTIONS (4)
  - Urine ketone body [Unknown]
  - Drug withdrawal convulsions [Unknown]
  - Constipation [Unknown]
  - Seizure [Unknown]

NARRATIVE: CASE EVENT DATE: 20150424
